FAERS Safety Report 8906041 (Version 7)
Quarter: 2013Q2

REPORT INFORMATION
  Report Type: Spontaneous
  Country: BR (occurrence: BR)
  Receive Date: 20121113
  Receipt Date: 20130514
  Transmission Date: 20140414
  Serious: Yes (Other)
  Sender: FDA-Public Use
  Company Number: BR-009507513-2012SP028810

PATIENT
  Age: 30 Year
  Sex: Female
  Weight: 58 kg

DRUGS (4)
  1. NUVARING [Suspect]
     Indication: CONTRACEPTION
     Dosage: UNK UNK, UNKNOWN
     Route: 067
     Dates: start: 2010, end: 2010
  2. NUVARING [Suspect]
     Dosage: UNK UNK, UNKNOWN
     Route: 067
     Dates: start: 20120428, end: 20120518
  3. NUVARING [Suspect]
     Dosage: UNK UNK, UNKNOWN
     Route: 067
     Dates: start: 201207
  4. NUVARING [Suspect]
     Dosage: UNK
     Route: 067
     Dates: start: 20120806

REACTIONS (42)
  - Abortion spontaneous [Unknown]
  - Uterine dilation and curettage [Unknown]
  - Exposure during pregnancy [Unknown]
  - Vaginal disorder [Not Recovered/Not Resolved]
  - Decreased appetite [Unknown]
  - Ovarian cyst [Not Recovered/Not Resolved]
  - Metrorrhagia [Unknown]
  - Metrorrhagia [Not Recovered/Not Resolved]
  - Abdominal pain [Unknown]
  - Abdominal pain [Recovered/Resolved]
  - Vulvovaginal pruritus [Recovered/Resolved]
  - Vaginal discharge [Not Recovered/Not Resolved]
  - Vaginal discharge [Not Recovered/Not Resolved]
  - Vaginal discharge [Unknown]
  - Vaginal discharge [Not Recovered/Not Resolved]
  - Candida infection [Not Recovered/Not Resolved]
  - Candida infection [Not Recovered/Not Resolved]
  - Vulvovaginal dryness [Not Recovered/Not Resolved]
  - Dysmenorrhoea [Not Recovered/Not Resolved]
  - Menstruation irregular [Recovered/Resolved]
  - Abnormal withdrawal bleeding [Not Recovered/Not Resolved]
  - Abnormal withdrawal bleeding [Not Recovered/Not Resolved]
  - Breast pain [Not Recovered/Not Resolved]
  - Headache [Recovered/Resolved]
  - Headache [Not Recovered/Not Resolved]
  - Nausea [Recovered/Resolved]
  - Dizziness [Unknown]
  - Diarrhoea [Recovered/Resolved]
  - Malaise [Unknown]
  - Vomiting [Recovered/Resolved]
  - Pain in extremity [Recovered/Resolved]
  - Pain in extremity [Not Recovered/Not Resolved]
  - Urinary tract infection [Recovered/Resolved]
  - Pruritus [Not Recovered/Not Resolved]
  - Vulvovaginal discomfort [Unknown]
  - Vulvovaginal discomfort [Recovered/Resolved]
  - Vulvovaginal burning sensation [Recovered/Resolved]
  - Inappropriate schedule of drug administration [Not Recovered/Not Resolved]
  - Incorrect product storage [Unknown]
  - Product quality issue [Unknown]
  - Device difficult to use [Unknown]
  - Device dislocation [Unknown]
